FAERS Safety Report 5212617-5 (Version None)
Quarter: 2007Q1

REPORT INFORMATION
  Report Type: 
  Country: None (occurrence: None)
  Receive Date: 20070118
  Receipt Date: 20070108
  Transmission Date: 20070707
  Serious: Yes (Other)
  Sender: FDA-Public Use
  Company Number: US-PFIZER INC-2007002746

PATIENT
  Sex: Female

DRUGS (1)
  1. ZITHROMAX [Suspect]

REACTIONS (2)
  - HEPATOCELLULAR DAMAGE [None]
  - LIVER TRANSPLANT [None]
